FAERS Safety Report 9783362 (Version 1)
Quarter: 2013Q4

REPORT INFORMATION
  Report Type: Spontaneous
  Country: US (occurrence: US)
  Receive Date: 20131226
  Receipt Date: 20131226
  Transmission Date: 20140711
  Serious: Yes (Other)
  Sender: FDA-Public Use
  Company Number: US-BAYER-2013-157132

PATIENT
  Age: 47 Year
  Sex: Female

DRUGS (3)
  1. YASMIN [Suspect]
  2. RABEPRAZOLE [Concomitant]
     Dosage: 20 MG, UNK
  3. SYNTHROID [Concomitant]
     Dosage: 100 ?G, UNK

REACTIONS (1)
  - Cholecystitis chronic [None]
